FAERS Safety Report 24159728 (Version 1)
Quarter: 2024Q3

REPORT INFORMATION
  Report Type: Spontaneous
  Country: NL (occurrence: NL)
  Receive Date: 20240731
  Receipt Date: 20240731
  Transmission Date: 20241017
  Serious: Yes (Hospitalization, Other)
  Sender: MERCK
  Company Number: NL-009507513-2407NLD013572

PATIENT
  Age: 54 Year
  Sex: Male
  Weight: 67 kg

DRUGS (1)
  1. KEYTRUDA [Suspect]
     Active Substance: PEMBROLIZUMAB
     Indication: Squamous cell carcinoma of head and neck
     Dosage: 200 MILLIGRAM, Q3W
     Dates: start: 202111

REACTIONS (7)
  - Autoimmune pancreatitis [Unknown]
  - Autoimmune hepatitis [Unknown]
  - Feeding disorder [Unknown]
  - Malignant neoplasm progression [Unknown]
  - Thyroid disorder [Unknown]
  - Constipation [Recovered/Resolved]
  - Product prescribing issue [Unknown]

NARRATIVE: CASE EVENT DATE: 20230601
